FAERS Safety Report 12824287 (Version 2)
Quarter: 2016Q4

REPORT INFORMATION
  Report Type: Report from Study
  Country: None (occurrence: RO)
  Receive Date: 20161007
  Receipt Date: 20161122
  Transmission Date: 20170207
  Serious: Yes (Hospitalization, Other)
  Sender: FDA-Public Use
  Company Number: RO-ABBVIE-16K-135-1720205-00

PATIENT
  Sex: Male

DRUGS (1)
  1. DUODOPA [Suspect]
     Active Substance: CARBIDOPA\LEVODOPA
     Indication: PARKINSON^S DISEASE
     Dosage: MD=8 ML, CR=5.6 ML/H, ED=5.5 ML, 16/24 H
     Route: 050
     Dates: start: 20130404

REACTIONS (2)
  - Device dislocation [Recovered/Resolved]
  - Stoma site irritation [Recovering/Resolving]

NARRATIVE: CASE EVENT DATE: 20161110
